FAERS Safety Report 9358366 (Version 1)
Quarter: 2013Q2

REPORT INFORMATION
  Report Type: Spontaneous
  Country: JP (occurrence: JP)
  Receive Date: 20130620
  Receipt Date: 20130620
  Transmission Date: 20140414
  Serious: Yes (Death, Other)
  Sender: FDA-Public Use
  Company Number: PHHY2013JP028070

PATIENT
  Age: 85 Year
  Sex: Male

DRUGS (4)
  1. NEORAL [Suspect]
     Indication: NEPHROTIC SYNDROME
     Dosage: 100 MG, DAILY
     Route: 048
     Dates: start: 20130105
  2. NEORAL [Suspect]
     Dosage: 150 MG, DAILY
     Route: 048
     Dates: start: 20130105, end: 20130317
  3. PREDNISOLONE [Suspect]
     Indication: NEPHROTIC SYNDROME
     Dosage: 40 MG, QD
     Route: 048
     Dates: start: 20121211
  4. PREDNISOLONE [Suspect]
     Dosage: 25 MG, QD
     Route: 048
     Dates: start: 20121211

REACTIONS (5)
  - Respiratory failure [Fatal]
  - Pneumonia cytomegaloviral [Fatal]
  - Cholecystitis infective [Fatal]
  - Liver abscess [Unknown]
  - Oral administration complication [Unknown]
